FAERS Safety Report 15688959 (Version 1)
Quarter: 2018Q4

REPORT INFORMATION
  Report Type: Spontaneous
  Country: US (occurrence: US)
  Receive Date: 20181205
  Receipt Date: 20181205
  Transmission Date: 20190205
  Serious: No
  Sender: FDA-Public Use
  Company Number: US-DRREDDYS-USA/USA/18/0105528

PATIENT
  Age: 50 Year
  Sex: Female
  Weight: 129.5 kg

DRUGS (1)
  1. HABITROL [Suspect]
     Active Substance: NICOTINE
     Indication: SMOKING CESSATION THERAPY
     Dosage: HARBITOL TRANSDERMAL NICOTINE REPLACEMENT PATCH STAGE1(21MG)-DRL 14 CT
     Route: 062
     Dates: start: 20181113, end: 20181115

REACTIONS (4)
  - Skin warm [Not Recovered/Not Resolved]
  - Rash macular [Not Recovered/Not Resolved]
  - Pruritus [Not Recovered/Not Resolved]
  - Piloerection [Not Recovered/Not Resolved]

NARRATIVE: CASE EVENT DATE: 20181115
